FAERS Safety Report 22090359 (Version 1)
Quarter: 2023Q1

REPORT INFORMATION
  Report Type: Spontaneous
  Country: US (occurrence: None)
  Receive Date: 20230313
  Receipt Date: 20230313
  Transmission Date: 20230417
  Serious: No
  Sender: FDA-Public Use
  Company Number: None

PATIENT
  Age: 60 Year
  Sex: Female

DRUGS (1)
  1. TALTZ [Suspect]
     Active Substance: IXEKIZUMAB
     Indication: Psoriasis
     Dosage: OTHER FREQUENCY : WK 12; Q4WKS;?
     Route: 058
     Dates: start: 202212

REACTIONS (4)
  - Injection site erythema [None]
  - Injection site pain [None]
  - Injection site pruritus [None]
  - Sinusitis [None]
